FAERS Safety Report 24049143 (Version 6)
Quarter: 2025Q1

REPORT INFORMATION
  Report Type: Report from Study
  Country: DE (occurrence: DE)
  Receive Date: 20240704
  Receipt Date: 20250107
  Transmission Date: 20250409
  Serious: No
  Sender: BAUSCH AND LOMB
  Company Number: DE-SA-SAC20240603000575

PATIENT
  Age: 72 Year
  Sex: Female
  Weight: 68 kg

DRUGS (34)
  1. DEXAMETHASONE [Suspect]
     Active Substance: DEXAMETHASONE
     Indication: Plasma cell myeloma refractory
     Dosage: 20 MG, QW
     Route: 065
     Dates: start: 20240322, end: 20240413
  2. ISATUXIMAB [Suspect]
     Active Substance: ISATUXIMAB
     Indication: Plasma cell myeloma refractory
     Dosage: 700 MG, QW
     Route: 065
     Dates: start: 20240322, end: 20240412
  3. ISATUXIMAB [Suspect]
     Active Substance: ISATUXIMAB
     Dosage: 688 MG, BIW
     Route: 065
     Dates: start: 20240516, end: 20240530
  4. CARFILZOMIB [Suspect]
     Active Substance: CARFILZOMIB
     Indication: Plasma cell myeloma refractory
     Route: 065
     Dates: start: 20240322, end: 20240323
  5. CARFILZOMIB [Suspect]
     Active Substance: CARFILZOMIB
     Dosage: 95 MG, QW
     Route: 065
     Dates: start: 20240516, end: 20240531
  6. CALCIUM CARBONATE\CHOLECALCIFEROL [Concomitant]
     Active Substance: CALCIUM CARBONATE\CHOLECALCIFEROL
     Indication: Osteoporosis
     Route: 065
     Dates: start: 202305
  7. VALERIAN [Concomitant]
     Active Substance: VALERIAN
     Indication: Insomnia
     Route: 065
     Dates: start: 20240325, end: 20240325
  8. COTRIMOXAZOLE [Concomitant]
     Active Substance: SULFAMETHOXAZOLE\TRIMETHOPRIM
     Indication: Infection prophylaxis
     Route: 065
     Dates: start: 20240325
  9. CODEINE PHOSPHATE [Concomitant]
     Active Substance: CODEINE PHOSPHATE
     Indication: Cough
     Route: 065
     Dates: start: 20240324, end: 20240324
  10. AMLODIPINE [Concomitant]
     Active Substance: AMLODIPINE BESYLATE
     Indication: Hypertension
     Route: 065
     Dates: start: 202305
  11. AMLODIPINE [Concomitant]
     Active Substance: AMLODIPINE BESYLATE
     Route: 065
  12. AMITRIPTYLINE HYDROCHLORIDE [Concomitant]
     Active Substance: AMITRIPTYLINE HYDROCHLORIDE
     Indication: Depression
     Route: 065
     Dates: start: 2023
  13. BENSERAZIDE\LEVODOPA [Concomitant]
     Active Substance: BENSERAZIDE\LEVODOPA
     Indication: Restless legs syndrome
     Route: 065
     Dates: start: 2023
  14. CANDESARTAN CILEXETIL [Concomitant]
     Active Substance: CANDESARTAN CILEXETIL
     Indication: Hypertension
     Route: 065
     Dates: start: 202305, end: 202404
  15. PRAMIPEXOLE [Concomitant]
     Active Substance: PRAMIPEXOLE
     Indication: Restless legs syndrome
     Route: 065
     Dates: start: 2023
  16. GRANISETRON [Concomitant]
     Active Substance: GRANISETRON
     Indication: Chronic gastritis
     Route: 065
     Dates: start: 202310, end: 20240509
  17. GRANISETRON [Concomitant]
     Active Substance: GRANISETRON
     Route: 065
     Dates: start: 20240406, end: 20240406
  18. ESOMEPRAZOLE [Concomitant]
     Active Substance: ESOMEPRAZOLE
     Indication: Chronic gastritis
     Route: 065
     Dates: start: 2023
  19. MELATONIN [Concomitant]
     Active Substance: MELATONIN
     Indication: Sleep disorder
     Route: 065
     Dates: start: 20240416
  20. ACETAMINOPHEN [Concomitant]
     Active Substance: ACETAMINOPHEN
     Indication: Premedication
     Route: 065
     Dates: start: 20240322
  21. OLANZAPINE [Concomitant]
     Active Substance: OLANZAPINE
     Indication: Chronic gastritis
     Route: 065
     Dates: start: 2023, end: 20240407
  22. TINZAPARIN [Concomitant]
     Active Substance: TINZAPARIN
     Indication: Thrombosis prophylaxis
     Route: 065
     Dates: start: 20240322, end: 20240517
  23. ACYCLOVIR [Concomitant]
     Active Substance: ACYCLOVIR
     Indication: Prophylaxis
     Route: 065
     Dates: start: 2023
  24. CLEMASTINE [Concomitant]
     Active Substance: CLEMASTINE
     Indication: Premedication
     Route: 065
     Dates: start: 20240312, end: 20240412
  25. CLEMASTINE [Concomitant]
     Active Substance: CLEMASTINE
     Route: 065
     Dates: start: 20240516, end: 20240516
  26. CLEMASTINE [Concomitant]
     Active Substance: CLEMASTINE
     Route: 065
     Dates: start: 20240322
  27. BISOPROLOL FUMARATE [Concomitant]
     Active Substance: BISOPROLOL FUMARATE
     Indication: Hypertension
     Route: 065
     Dates: start: 202305
  28. ETHOXAZORUTOSIDE\SODIUM ACETATE\SODIUM CHLORIDE\SORBITOL [Concomitant]
     Active Substance: ETHOXAZORUTOSIDE\SODIUM ACETATE\SODIUM CHLORIDE\SORBITOL
     Indication: Premedication
     Route: 065
     Dates: start: 20240322
  29. DEXAMETHASONE [Concomitant]
     Active Substance: DEXAMETHASONE
     Indication: Premedication
     Route: 065
     Dates: start: 20240322
  30. DEXTROSE [Concomitant]
     Active Substance: DEXTROSE MONOHYDRATE
     Indication: Prophylaxis
  31. HYDROMORPHONE HYDROCHLORIDE [Concomitant]
     Active Substance: HYDROMORPHONE HYDROCHLORIDE
     Indication: Spinal osteoarthritis
     Dates: start: 20240531, end: 20240612
  32. METAMIZOL [Concomitant]
     Active Substance: METAMIZOLE SODIUM
     Indication: Back pain
     Dates: start: 20240325
  33. METAMIZOL [Concomitant]
     Active Substance: METAMIZOLE SODIUM
     Indication: Neck pain
     Dates: start: 20240407, end: 20240407
  34. METAMIZOL [Concomitant]
     Active Substance: METAMIZOLE SODIUM
     Indication: Headache
     Dates: start: 20240612, end: 20240615

REACTIONS (6)
  - Hypertensive crisis [Recovered/Resolved]
  - Arthralgia [Unknown]
  - Cough [Recovered/Resolved]
  - Restless legs syndrome [Not Recovered/Not Resolved]
  - Neutropenia [Recovered/Resolved]
  - Urticaria [Recovered/Resolved]

NARRATIVE: CASE EVENT DATE: 20240322
